FAERS Safety Report 8187525 (Version 3)
Quarter: 2013Q3

REPORT INFORMATION
  Report Type: Spontaneous
  Country: US (occurrence: US)
  Receive Date: 20111018
  Receipt Date: 20130802
  Transmission Date: 20140515
  Serious: Yes (Hospitalization)
  Sender: FDA-Public Use
  Company Number: US-ASTRAZENECA-2010SE60032

PATIENT
  Age: 81 Year
  Sex: Female
  Weight: 40.8 kg

DRUGS (7)
  1. SYMBICORT [Suspect]
     Indication: CHRONIC OBSTRUCTIVE PULMONARY DISEASE
     Dosage: 160/4.5 ONE PUFF BID
     Route: 055
  2. SYMBICORT [Suspect]
     Indication: CHRONIC OBSTRUCTIVE PULMONARY DISEASE
     Dosage: 160/4.5 TWO PUFFS BID
     Route: 055
  3. LORAZEPAM [Concomitant]
  4. THYROID MEDICATION [Concomitant]
  5. AZITHROMYCIN [Concomitant]
  6. MUCINEX [Concomitant]
     Indication: RHINORRHOEA
  7. TUSLYN [Concomitant]
     Indication: PULMONARY CONGESTION

REACTIONS (27)
  - Bronchitis [Unknown]
  - Unevaluable event [Unknown]
  - Increased bronchial secretion [Unknown]
  - Eye disorder [Unknown]
  - Dyspnoea [Unknown]
  - Malaise [Unknown]
  - Increased upper airway secretion [Unknown]
  - Choking [Unknown]
  - Abdominal discomfort [Unknown]
  - Limb discomfort [Unknown]
  - Weight decreased [Unknown]
  - Sleep disorder due to a general medical condition [Unknown]
  - Constipation [Unknown]
  - Aphagia [Unknown]
  - Abdominal pain lower [Unknown]
  - Chest pain [Unknown]
  - Activities of daily living impaired [Unknown]
  - Pulmonary congestion [Unknown]
  - Osteoporosis [Unknown]
  - Dry mouth [Unknown]
  - Insomnia [Unknown]
  - Cough [Unknown]
  - Headache [Unknown]
  - Dizziness [Unknown]
  - Nasal dryness [Unknown]
  - Drug ineffective [Unknown]
  - Intentional drug misuse [Unknown]
